FAERS Safety Report 19767602 (Version 1)
Quarter: 2021Q3

REPORT INFORMATION
  Report Type: Spontaneous
  Country: US (occurrence: US)
  Receive Date: 20210827
  Receipt Date: 20210827
  Transmission Date: 20211014
  Serious: No
  Sender: FDA-Public Use
  Company Number: None

PATIENT
  Sex: Female

DRUGS (4)
  1. PIQRAY [Suspect]
     Active Substance: ALPELISIB
     Indication: MIGRAINE WITHOUT AURA
     Route: 048
     Dates: start: 20210423
  2. PIQRAY [Suspect]
     Active Substance: ALPELISIB
     Indication: BREAST CANCER FEMALE
     Route: 048
     Dates: start: 20210423
  3. PIQRAY [Suspect]
     Active Substance: ALPELISIB
     Indication: METASTASES TO LUNG
     Route: 048
     Dates: start: 20210423
  4. PIQRAY [Suspect]
     Active Substance: ALPELISIB
     Indication: MIGRAINE
     Route: 048
     Dates: start: 20210423

REACTIONS (1)
  - Wrong schedule [None]
